FAERS Safety Report 6184441-0 (Version None)
Quarter: 2009Q2

REPORT INFORMATION
  Report Type: 
  Country: None (occurrence: None)
  Receive Date: 20090508
  Receipt Date: 20090428
  Transmission Date: 20091009
  Serious: Yes (Hospitalization)
  Sender: FDA-Public Use
  Company Number: AU-WATSON-2009-02977

PATIENT
  Age: 45 Year
  Sex: Female

DRUGS (4)
  1. HYDROXYCHLOROQUINE SULFATE (WATSON LABORATORIES) [Suspect]
     Indication: DRUG USE FOR UNKNOWN INDICATION
     Dosage: 20 G, SINGLE
     Route: 048
     Dates: start: 20090101
  2. CLARITHROMYCIN [Suspect]
     Indication: DRUG USE FOR UNKNOWN INDICATION
     Dosage: 3.5 G, SINGLE
     Route: 048
     Dates: start: 20090101
  3. PARACETAMOL [Suspect]
     Indication: DRUG USE FOR UNKNOWN INDICATION
     Dosage: 12 G, SINGLE
     Route: 048
  4. CELECOXIB [Suspect]
     Indication: DRUG USE FOR UNKNOWN INDICATION
     Dosage: 2 G, SINGLE
     Route: 048
     Dates: start: 20090101

REACTIONS (8)
  - ACIDOSIS [None]
  - ELECTROCARDIOGRAM QRS COMPLEX PROLONGED [None]
  - ELECTROMECHANICAL DISSOCIATION [None]
  - HYPOKALAEMIA [None]
  - HYPOTHERMIA [None]
  - LOSS OF CONSCIOUSNESS [None]
  - MYOPATHY [None]
  - OVERDOSE [None]
